FAERS Safety Report 14137833 (Version 1)
Quarter: 2017Q4

REPORT INFORMATION
  Report Type: Spontaneous
  Country: FR (occurrence: FR)
  Receive Date: 20171027
  Receipt Date: 20171027
  Transmission Date: 20180321
  Serious: Yes (Other)
  Sender: FDA-Public Use
  Company Number: FR-MERCK KGAA-2031732

PATIENT
  Age: 70 Year
  Sex: Female

DRUGS (7)
  1. AVLOCARDYL [Concomitant]
     Active Substance: PROPRANOLOL HYDROCHLORIDE
  2. KEPPRA [Concomitant]
     Active Substance: LEVETIRACETAM
  3. NOVOTHYROX [Suspect]
     Active Substance: LEVOTHYROXINE SODIUM
     Indication: HYPOTHYROIDISM
     Dates: start: 201704
  4. VIMPAT [Concomitant]
     Active Substance: LACOSAMIDE
  5. RIVOTRIL [Concomitant]
     Active Substance: CLONAZEPAM
  6. ALEPSAL (PHENOBARBITAL) [Concomitant]
     Active Substance: PHENOBARBITAL
  7. LEXOMIL [Concomitant]
     Active Substance: BROMAZEPAM

REACTIONS (9)
  - Alopecia [Unknown]
  - Cluster headache [Unknown]
  - Suicidal ideation [Unknown]
  - Insomnia [Unknown]
  - Pain in extremity [Unknown]
  - Crying [Unknown]
  - Nausea [Unknown]
  - Vertigo [Unknown]
  - Fall [Unknown]

NARRATIVE: CASE EVENT DATE: 2017
